FAERS Safety Report 15629984 (Version 1)
Quarter: 2018Q4

REPORT INFORMATION
  Report Type: Spontaneous
  Country: US (occurrence: US)
  Receive Date: 20181117
  Receipt Date: 20181117
  Transmission Date: 20190205
  Serious: No
  Sender: FDA-Public Use
  Company Number: US-MYLANLABS-2018M1087058

PATIENT
  Sex: Female
  Weight: 72 kg

DRUGS (1)
  1. ESTRADIOL TRANSDERMAL SYSTEM [Suspect]
     Active Substance: ESTRADIOL
     Indication: MENOPAUSE
     Dosage: TWICE WEEKLY
     Route: 062

REACTIONS (3)
  - Application site vesicles [Not Recovered/Not Resolved]
  - Application site pruritus [Unknown]
  - Product residue present [Unknown]
